FAERS Safety Report 19291954 (Version 1)
Quarter: 2021Q2

REPORT INFORMATION
  Report Type: Other
  Country: IT (occurrence: IT)
  Receive Date: 20210524
  Receipt Date: 20210524
  Transmission Date: 20210717
  Serious: Yes (Other)
  Sender: FDA-Public Use
  Company Number: IT-CELLTRION INC.-2021IT006795

PATIENT

DRUGS (3)
  1. REMSIMA [Suspect]
     Active Substance: INFLIXIMAB
     Indication: COLITIS ULCERATIVE
     Dosage: 275 MG
     Route: 042
     Dates: start: 20180201, end: 20200918
  2. ASACOL [Concomitant]
     Active Substance: MESALAMINE
     Indication: COLITIS ULCERATIVE
     Dosage: 2400 MG
     Route: 048
  3. ASACOL 2 G/50 ML [Concomitant]
     Indication: COLITIS ULCERATIVE
     Dosage: 1 DF
     Route: 054

REACTIONS (3)
  - Colitis ulcerative [Recovering/Resolving]
  - Loss of therapeutic response [Recovering/Resolving]
  - Diarrhoea [Recovering/Resolving]

NARRATIVE: CASE EVENT DATE: 20201016
